FAERS Safety Report 5584105-8 (Version None)
Quarter: 2008Q1

REPORT INFORMATION
  Report Type: 
  Country: None (occurrence: None)
  Receive Date: 20080108
  Receipt Date: 20080103
  Transmission Date: 20080703
  Serious: Yes (Other)
  Sender: FDA-Public Use
  Company Number: PHBS2007DE08197

PATIENT
  Age: 40 Year
  Sex: Male

DRUGS (3)
  1. PANTOPRAZOLE SODIUM [Suspect]
     Dates: start: 20070101, end: 20070101
  2. DICLOFENAC SODIUM [Suspect]
  3. VITAMINS [Suspect]

REACTIONS (1)
  - ANAPHYLACTIC SHOCK [None]
